FAERS Safety Report 6356760-6 (Version None)
Quarter: 2009Q3

REPORT INFORMATION
  Report Type: 
  Country: None (occurrence: None)
  Receive Date: 20090914
  Receipt Date: 20090914
  Transmission Date: 20100115
  Serious: No
  Sender: FDA-Public Use
  Company Number: None

PATIENT
  Sex: Female
  Weight: 89.8122 kg

DRUGS (22)
  1. XOLAIR [Suspect]
     Indication: ASTHMA
     Dosage: 300 MG IM MONTHLY
     Route: 030
     Dates: start: 20090203
  2. XOLAIR [Suspect]
     Indication: RHINITIS ALLERGIC
     Dosage: 300 MG IM MONTHLY
     Route: 030
     Dates: start: 20090203
  3. XOLAIR [Suspect]
     Indication: ASTHMA
     Dosage: 300 MG IM MONTHLY
     Route: 030
     Dates: start: 20090303
  4. XOLAIR [Suspect]
     Indication: RHINITIS ALLERGIC
     Dosage: 300 MG IM MONTHLY
     Route: 030
     Dates: start: 20090303
  5. XOLAIR [Suspect]
     Indication: ASTHMA
     Dosage: 300 MG IM MONTHLY
     Route: 030
     Dates: start: 20090402
  6. XOLAIR [Suspect]
     Indication: RHINITIS ALLERGIC
     Dosage: 300 MG IM MONTHLY
     Route: 030
     Dates: start: 20090402
  7. XOLAIR [Suspect]
     Indication: ASTHMA
     Dosage: 300 MG IM MONTHLY
     Route: 030
     Dates: start: 20090504
  8. XOLAIR [Suspect]
     Indication: RHINITIS ALLERGIC
     Dosage: 300 MG IM MONTHLY
     Route: 030
     Dates: start: 20090504
  9. XOLAIR [Suspect]
     Indication: ASTHMA
     Dosage: 300 MG IM MONTHLY
     Route: 030
     Dates: start: 20090602
  10. XOLAIR [Suspect]
     Indication: RHINITIS ALLERGIC
     Dosage: 300 MG IM MONTHLY
     Route: 030
     Dates: start: 20090602
  11. XOLAIR [Suspect]
     Indication: ASTHMA
     Dosage: 300 MG IM MONTHLY
     Route: 030
     Dates: start: 20090702
  12. XOLAIR [Suspect]
     Indication: RHINITIS ALLERGIC
     Dosage: 300 MG IM MONTHLY
     Route: 030
     Dates: start: 20090702
  13. XOLAIR [Suspect]
     Indication: ASTHMA
     Dosage: 300 MG IM MONTHLY
     Route: 030
     Dates: start: 20090801
  14. XOLAIR [Suspect]
     Indication: RHINITIS ALLERGIC
     Dosage: 300 MG IM MONTHLY
     Route: 030
     Dates: start: 20090801
  15. PREDNISONE [Concomitant]
  16. SUDAFED 12 HOUR [Concomitant]
  17. ADVAIR HFA [Concomitant]
  18. BUSPAR [Concomitant]
  19. ZYRTEC [Concomitant]
  20. SINGULAIR [Concomitant]
  21. SYNTHROID [Concomitant]
  22. XOPENEX [Concomitant]

REACTIONS (1)
  - ISCHAEMIA [None]
